FAERS Safety Report 18966716 (Version 1)
Quarter: 2021Q1

REPORT INFORMATION
  Report Type: Spontaneous
  Country: US (occurrence: US)
  Receive Date: 20210304
  Receipt Date: 20210304
  Transmission Date: 20210420
  Serious: Yes (Other)
  Sender: FDA-Public Use
  Company Number: US-ROCHE-2769042

PATIENT
  Sex: Female

DRUGS (20)
  1. TUKYSA [Suspect]
     Active Substance: TUCATINIB
     Indication: BREAST CANCER
     Route: 065
  2. DULOXETINE. [Concomitant]
     Active Substance: DULOXETINE
  3. NAPROXEN. [Concomitant]
     Active Substance: NAPROXEN
  4. GRALISE [Concomitant]
     Active Substance: GABAPENTIN
  5. LORAZEPAM. [Concomitant]
     Active Substance: LORAZEPAM
  6. PROCHLORPERAZINE. [Concomitant]
     Active Substance: PROCHLORPERAZINE
  7. TIZANIDINE. [Concomitant]
     Active Substance: TIZANIDINE
  8. VALACYCLOVIR [Concomitant]
     Active Substance: VALACYCLOVIR HYDROCHLORIDE
  9. SPIRONOLACTONE. [Concomitant]
     Active Substance: SPIRONOLACTONE
  10. SUMATRIPTAN. [Concomitant]
     Active Substance: SUMATRIPTAN
  11. CAPECITABINE. [Suspect]
     Active Substance: CAPECITABINE
     Indication: PRODUCT USED FOR UNKNOWN INDICATION
     Route: 048
  12. ONDANSETRON [Concomitant]
     Active Substance: ONDANSETRON
  13. MELOXICAM. [Concomitant]
     Active Substance: MELOXICAM
  14. RESTASIS [Concomitant]
     Active Substance: CYCLOSPORINE
  15. BIOTIN [Concomitant]
     Active Substance: BIOTIN
  16. DIPHENOXYLATE/ATROPINE [Concomitant]
     Active Substance: ATROPINE\DIPHENOXYLATE
  17. FAMOTIDINE. [Concomitant]
     Active Substance: FAMOTIDINE
  18. GABAPENTIN. [Concomitant]
     Active Substance: GABAPENTIN
  19. MELATONIN [Concomitant]
     Active Substance: MELATONIN
  20. MONTELUKAST [Concomitant]
     Active Substance: MONTELUKAST SODIUM

REACTIONS (3)
  - Diarrhoea [Unknown]
  - Renal failure [Unknown]
  - Nausea [Unknown]
